FAERS Safety Report 11813881 (Version 3)
Quarter: 2017Q2

REPORT INFORMATION
  Report Type: Report from Study
  Country: EC (occurrence: EC)
  Receive Date: 20151209
  Receipt Date: 20170627
  Transmission Date: 20170829
  Serious: Yes (Death, Hospitalization, Other)
  Sender: FDA-Public Use
  Company Number: EC-INCYTE CORPORATION-2015IN004600

PATIENT

DRUGS (5)
  1. JAKAVI [Suspect]
     Active Substance: RUXOLITINIB
     Dosage: 15 MG, QD
     Route: 048
     Dates: start: 20160106, end: 20160204
  2. JAKAVI [Suspect]
     Active Substance: RUXOLITINIB
     Indication: MYELOFIBROSIS
     Dosage: 15 MG, BID
     Route: 048
     Dates: start: 20150821, end: 20151126
  3. JAKAVI [Suspect]
     Active Substance: RUXOLITINIB
     Dosage: 15 MG, BID
     Route: 048
     Dates: start: 20160218, end: 20160420
  4. JAKAVI [Suspect]
     Active Substance: RUXOLITINIB
     Dosage: 15 MG, ONE DAILY AND TWO DAILY ON ALTERNATE DAYS
     Route: 048
     Dates: start: 20160421, end: 20170530
  5. JAKAVI [Suspect]
     Active Substance: RUXOLITINIB
     Dosage: 15 MG, BID
     Route: 048
     Dates: start: 20170531, end: 20170608

REACTIONS (11)
  - Haematocrit decreased [Unknown]
  - Diarrhoea [Recovered/Resolved]
  - Malaise [Unknown]
  - Haemoglobin decreased [Unknown]
  - Abdominal pain upper [Recovering/Resolving]
  - Depressed mood [Recovering/Resolving]
  - Death [Fatal]
  - Chest pain [Unknown]
  - General physical health deterioration [Unknown]
  - Large intestinal obstruction [Recovering/Resolving]
  - Eczema infected [Unknown]

NARRATIVE: CASE EVENT DATE: 20150904
